FAERS Safety Report 4281470-9 (Version None)
Quarter: 2004Q1

REPORT INFORMATION
  Report Type: 
  Country: None (occurrence: None)
  Receive Date: 20040112
  Receipt Date: 20031024
  Transmission Date: 20041129
  Serious: Yes (Other)
  Sender: FDA-Public Use
  Company Number: US-JNJFOC-20031006455

PATIENT
  Age: 83 Year
  Sex: Male

DRUGS (3)
  1. ABCIXIMAB (ABCIXIMAB) INJECTION [Suspect]
     Indication: ANGIOPLASTY
     Dosage: INTRAVENOUS
     Route: 042
  2. ASPIRIN [Concomitant]
  3. HEPARIN [Concomitant]

REACTIONS (1)
  - THROMBOCYTOPENIA [None]
